FAERS Safety Report 9246365 (Version 2)
Quarter: 2013Q2

REPORT INFORMATION
  Report Type: Spontaneous
  Country: US (occurrence: US)
  Receive Date: 20130422
  Receipt Date: 20130606
  Transmission Date: 20140414
  Serious: No
  Sender: FDA-Public Use
  Company Number: US-PFIZER INC-2013125381

PATIENT
  Age: 67 Year
  Sex: Female
  Weight: 68.48 kg

DRUGS (6)
  1. LYRICA [Suspect]
     Indication: FIBROMYALGIA
     Dosage: UNK
     Dates: start: 2011, end: 2012
  2. LYRICA [Suspect]
     Indication: NEUROPATHY PERIPHERAL
  3. LYRICA [Suspect]
     Indication: NERVE COMPRESSION
  4. EFFEXOR XR [Suspect]
     Indication: DEPRESSION
     Dosage: UNK
     Dates: start: 2008, end: 2012
  5. IBUPROFEN [Suspect]
     Indication: PAIN
     Dosage: UNK
  6. MERCAPTOPURINE [Concomitant]
     Indication: AUTOIMMUNE HEPATITIS
     Dosage: 50 MG, UNK

REACTIONS (6)
  - Drug ineffective [Unknown]
  - Pain [Recovered/Resolved]
  - Lethargy [Recovered/Resolved]
  - Vomiting [Recovered/Resolved]
  - Drug intolerance [Unknown]
  - Blood glucose increased [Unknown]
